FAERS Safety Report 8870314 (Version 1)
Quarter: 2012Q4

REPORT INFORMATION
  Report Type: 
  Country: US (occurrence: US)
  Receive Date: 20121026
  Receipt Date: 20121026
  Transmission Date: 20130627
  Serious: No
  Sender: FDA-Public Use
  Company Number: US-AMGEN-USASP2012043463

PATIENT
  Sex: Male
  Weight: 113.38 kg

DRUGS (9)
  1. ENBREL [Suspect]
     Indication: PRODUCT USED FOR UNKNOWN INDICATION
     Dosage: 50 mg, qwk
     Route: 058
  2. PANTOPRAZOLE [Concomitant]
     Dosage: 40 mg, UNK
  3. LIPITOR [Concomitant]
     Dosage: 20 mg, UNK
  4. GEMFIBROZIL [Concomitant]
     Dosage: 600 mg, UNK
  5. ASPIRIN [Concomitant]
     Dosage: 81 mg, UNK
  6. DICYCLOMINE                        /00068601/ [Concomitant]
     Dosage: 20 mg, UNK
  7. HYDROCHLOROTH [Concomitant]
     Dosage: 12.5 mg, UNK
  8. HYDROCODONE W/APAP                 /00607101/ [Concomitant]
     Dosage: 10-300mg
  9. LEVOTHYROXIN [Concomitant]
     Dosage: 200 mug, UNK

REACTIONS (1)
  - Pain [Unknown]
